FAERS Safety Report 13055247 (Version 2)
Quarter: 2017Q1

REPORT INFORMATION
  Report Type: Other
  Country: IT (occurrence: DK)
  Receive Date: 20161222
  Receipt Date: 20170303
  Transmission Date: 20170428
  Serious: Yes (Other)
  Sender: FDA-Public Use
  Company Number: IT-SIGMA-TAU US-2016STPI001013

PATIENT
  Sex: Female

DRUGS (5)
  1. MATULANE [Suspect]
     Active Substance: PROCARBAZINE HYDROCHLORIDE
     Indication: HODGKIN^S DISEASE
     Dosage: 100 MG/M2, UNK
     Route: 048
     Dates: start: 20050310, end: 20050725
  2. PREDNISOLON                        /00016202/ [Suspect]
     Active Substance: PREDNISOLONE
     Indication: HODGKIN^S DISEASE
     Dosage: UNK
     Route: 048
     Dates: start: 20050310, end: 20050725
  3. ONCOVIN [Suspect]
     Active Substance: VINCRISTINE SULFATE
     Indication: HODGKIN^S DISEASE
     Dosage: 1.5 MG/M2, UNK
     Route: 042
     Dates: start: 20050310, end: 20050727
  4. ADRIAMYCIN [Suspect]
     Active Substance: DOXORUBICIN HYDROCHLORIDE
     Indication: HODGKIN^S DISEASE
     Dosage: 40 MG/M2, UNK
     Route: 042
     Dates: start: 20050310, end: 20050725
  5. SENDOXAN [Suspect]
     Active Substance: CYCLOPHOSPHAMIDE
     Indication: HODGKIN^S DISEASE
     Dosage: 500 MG/M2, UNK
     Route: 042
     Dates: start: 20050310, end: 20050725

REACTIONS (4)
  - Joint destruction [Recovered/Resolved]
  - Bone infarction [Not Recovered/Not Resolved]
  - Synovitis [Recovered/Resolved]
  - Arthralgia [Not Recovered/Not Resolved]
